FAERS Safety Report 20074168 (Version 1)
Quarter: 2021Q4

REPORT INFORMATION
  Report Type: Spontaneous
  Country: US (occurrence: None)
  Receive Date: 20211113
  Receipt Date: 20211113
  Transmission Date: 20220304
  Serious: Yes (Hospitalization)
  Sender: FDA-Public Use
  Company Number: None

PATIENT
  Age: 55 Year
  Sex: Female
  Weight: 66.3 kg

DRUGS (2)
  1. DEXAMETHASONE [Suspect]
     Active Substance: DEXAMETHASONE
     Dates: end: 20210322
  2. LENALIDOMIDE [Suspect]
     Active Substance: LENALIDOMIDE
     Dates: end: 20210918

REACTIONS (5)
  - Hyponatraemia [None]
  - Hypokalaemia [None]
  - Blood creatinine increased [None]
  - Acute kidney injury [None]
  - Urinary tract infection [None]

NARRATIVE: CASE EVENT DATE: 20210918
